FAERS Safety Report 8519137-0 (Version None)
Quarter: 2012Q3

REPORT INFORMATION
  Report Type: 
  Country: None (occurrence: None)
  Receive Date: 20120718
  Receipt Date: 20120709
  Transmission Date: 20120928
  Serious: Yes (Other)
  Sender: FDA-Public Use
  Company Number: US-BAYER-2012-071106

PATIENT
  Age: 78 Year
  Sex: Female
  Weight: 68.95 kg

DRUGS (8)
  1. ASPIRIN [Suspect]
     Route: 048
  2. XARELTO [Interacting]
     Indication: CEREBROVASCULAR ACCIDENT PROPHYLAXIS
     Dosage: 20 MG, QD
     Route: 048
     Dates: start: 20120625
  3. DIOVAN [Concomitant]
     Indication: BLOOD PRESSURE ABNORMAL
     Dosage: 320 MG, QD
     Route: 048
     Dates: start: 20000101
  4. XARELTO [Interacting]
     Indication: ATRIAL FIBRILLATION
  5. CLONIDINE [Concomitant]
     Indication: BLOOD PRESSURE ABNORMAL
     Dosage: .2 MG, OW
     Route: 061
  6. NORVASC [Concomitant]
     Dosage: 10 MG, QD
     Route: 048
     Dates: start: 20070101
  7. PLAVIX [Concomitant]
     Route: 048
     Dates: start: 20070101
  8. METOPROLOL SUCCINATE [Concomitant]
     Indication: BLOOD PRESSURE ABNORMAL
     Dosage: 50 MG, QD
     Route: 048

REACTIONS (1)
  - HAEMORRHAGE [None]
